FAERS Safety Report 9521470 (Version 1)
Quarter: 2013Q1

REPORT INFORMATION
  Report Type: Spontaneous
  Country: US (occurrence: None)
  Receive Date: 20130305
  Receipt Date: 20130305
  Transmission Date: 20140127
  Serious: Yes (Other)
  Sender: FDA-Public Use
  Company Number: 163-21880-12022241

PATIENT
  Age: 85 Year
  Sex: Male

DRUGS (8)
  1. REVLIMID [Suspect]
     Indication: PLASMA CELL MYELOMA
     Dosage: 25 MG, DAILY X 21 D/28D, PO
     Route: 048
     Dates: start: 20120123
  2. MIRTAZAPINE (MIRTAZAPINE) (UNKNOWN) [Concomitant]
  3. METFORMIN (METFORMIN) (UNKNOWN) [Concomitant]
  4. TAMSULOSIN (TAMSULOSIN) (UNKNOWN) [Concomitant]
  5. OMEPRAZOLE (OMEPRAZOLE) (UNKNOWN) [Concomitant]
  6. LEVOTHYROID (LEVOTHYROXINE) (UNKNOWN)? [Concomitant]
  7. ATENOLOL (ATENOLOL) (UNKNOWN)? [Concomitant]
  8. LEFLUNOMIDE (LEFLUNOMIDE) (UNKNOWN) [Concomitant]

REACTIONS (2)
  - Decreased appetite [None]
  - Pain [None]
